FAERS Safety Report 8574559-7 (Version None)
Quarter: 2012Q3

REPORT INFORMATION
  Report Type: 
  Country: None (occurrence: None)
  Receive Date: 20120806
  Receipt Date: 20120723
  Transmission Date: 20120928
  Serious: Yes (Other)
  Sender: FDA-Public Use
  Company Number: CHPA2012US016741

PATIENT
  Age: 79 Year
  Sex: Female

DRUGS (3)
  1. EXCEDRIN (MIGRAINE) [Concomitant]
     Dosage: UNK, UNK
  2. EXCEDRIN (MIGRAINE) [Suspect]
     Indication: PAIN
     Dosage: 1 DF, PRN
     Route: 048
  3. EXCEDRIN TENSION HEADACHE CAPLETS [Concomitant]
     Indication: PAIN
     Dosage: UNK, UNK
     Route: 048

REACTIONS (5)
  - THERAPEUTIC RESPONSE UNEXPECTED [None]
  - OFF LABEL USE [None]
  - INTERVERTEBRAL DISC DISORDER [None]
  - PAIN IN EXTREMITY [None]
  - UNDERDOSE [None]
